FAERS Safety Report 17723177 (Version 1)
Quarter: 2020Q2

REPORT INFORMATION
  Report Type: Spontaneous
  Country: US (occurrence: US)
  Receive Date: 20200428
  Receipt Date: 20200428
  Transmission Date: 20200714
  Serious: Yes (Other)
  Sender: FDA-Public Use
  Company Number: None

PATIENT
  Age: 68 Year
  Sex: Female
  Weight: 56.25 kg

DRUGS (3)
  1. VRAYLAR [Concomitant]
     Active Substance: CARIPRAZINE
     Dates: start: 20190915
  2. TEMAZEPAM. [Suspect]
     Active Substance: TEMAZEPAM
     Indication: INSOMNIA
     Route: 048
     Dates: start: 20200227, end: 20200426
  3. DULOXETINE. [Concomitant]
     Active Substance: DULOXETINE
     Dates: start: 20190901

REACTIONS (2)
  - Amnesia [None]
  - Hallucination, visual [None]

NARRATIVE: CASE EVENT DATE: 20200425
